FAERS Safety Report 7872327-2 (Version None)
Quarter: 2011Q4

REPORT INFORMATION
  Report Type: 
  Country: None (occurrence: None)
  Receive Date: 20111030
  Receipt Date: 20110317
  Transmission Date: 20120403
  Serious: No
  Sender: FDA-Public Use
  Company Number: US-AMGEN-USASP2011014798

PATIENT
  Age: 68 Year
  Sex: Female
  Weight: 90.703 kg

DRUGS (9)
  1. FOLIC ACID [Concomitant]
     Dosage: 1 MG, UNK
  2. MULTIVITAMIN                       /00097801/ [Concomitant]
  3. ARTHROTEC [Concomitant]
  4. ATENOLOL [Concomitant]
     Dosage: 25 MG, UNK
  5. METFORMIN HCL [Concomitant]
     Dosage: 500 MG, UNK
  6. ASPIRIN [Concomitant]
     Dosage: 81 MG, UNK
  7. METHOTREXATE [Concomitant]
     Dosage: 2.5 MG, UNK
  8. ENBREL [Suspect]
     Indication: PRODUCT USED FOR UNKNOWN INDICATION
     Dosage: 50 MG, QWK
  9. PRAVASTATIN [Concomitant]
     Dosage: 20 MG, UNK

REACTIONS (1)
  - STAPHYLOCOCCAL INFECTION [None]
